FAERS Safety Report 17711480 (Version 1)
Quarter: 2020Q2

REPORT INFORMATION
  Report Type: Spontaneous
  Country: CA (occurrence: CA)
  Receive Date: 20200427
  Receipt Date: 20200427
  Transmission Date: 20200714
  Serious: Yes (Other)
  Sender: FDA-Public Use
  Company Number: NVSC2020CA111391

PATIENT
  Sex: Male

DRUGS (1)
  1. HALOPERIDOL LA (HALOPERIDOL DECANOATE) [Suspect]
     Active Substance: HALOPERIDOL DECANOATE
     Indication: PRODUCT USED FOR UNKNOWN INDICATION
     Dosage: 600 MG
     Route: 065

REACTIONS (1)
  - Psychotic symptom [Not Recovered/Not Resolved]
